FAERS Safety Report 10078384 (Version 1)
Quarter: 2014Q2

REPORT INFORMATION
  Report Type: Report from Study
  Country: US (occurrence: US)
  Receive Date: 20140415
  Receipt Date: 20140415
  Transmission Date: 20141212
  Serious: Yes (Hospitalization)
  Sender: FDA-Public Use
  Company Number: US-ROCHE-1378667

PATIENT
  Age: 10 Year
  Sex: Male

DRUGS (2)
  1. NUTROPIN [Suspect]
     Indication: GROWTH HORMONE DEFICIENCY
     Dosage: 6 INJ/WEEK
     Route: 058
  2. LEVOTHYROXINE SODIUM [Concomitant]
     Route: 048

REACTIONS (4)
  - Convulsion [Recovered/Resolved with Sequelae]
  - Sinusitis [Recovered/Resolved]
  - Aggression [Unknown]
  - Vitamin D decreased [Unknown]
